FAERS Safety Report 18451793 (Version 25)
Quarter: 2024Q1

REPORT INFORMATION
  Report Type: Report from Study
  Country: US (occurrence: US)
  Receive Date: 20201102
  Receipt Date: 20240319
  Transmission Date: 20240410
  Serious: Yes (Hospitalization, Other)
  Sender: FDA-Public Use
  Company Number: US-SHIRE-US202034452

PATIENT
  Age: 15 Year
  Sex: Female
  Weight: 54 kg

DRUGS (25)
  1. HUMAN IMMUNOGLOBULIN G [Suspect]
     Active Substance: HUMAN IMMUNOGLOBULIN G
     Indication: Immunodeficiency common variable
     Dosage: 20 GRAM, Q4WEEKS
     Route: 042
     Dates: start: 20210928
  2. HUMAN IMMUNOGLOBULIN G [Suspect]
     Active Substance: HUMAN IMMUNOGLOBULIN G
     Indication: Rhinitis allergic
  3. CUVITRU [Suspect]
     Active Substance: HUMAN IMMUNOGLOBULIN G
     Indication: Product used for unknown indication
     Dosage: 13 GRAM, Q2WEEKS
     Route: 058
     Dates: start: 201908
  4. COVID-19 VACCINE NOS [Suspect]
     Active Substance: COVID-19 VACCINE NOS
     Indication: Product used for unknown indication
     Dosage: UNK
     Route: 065
  5. DIPHENHYDRAMINE HYDROCHLORIDE [Concomitant]
     Active Substance: DIPHENHYDRAMINE HYDROCHLORIDE
     Dosage: UNK
  6. DULERA [Concomitant]
     Active Substance: FORMOTEROL FUMARATE DIHYDRATE\MOMETASONE FUROATE
     Dosage: UNK
  7. SODIUM CHLORIDE [Concomitant]
     Active Substance: SODIUM CHLORIDE
     Dosage: UNK
  8. EPINEPHRINE [Concomitant]
     Active Substance: EPINEPHRINE
     Dosage: UNK
  9. ALLEGRA ALLERGY [Concomitant]
     Active Substance: FEXOFENADINE HYDROCHLORIDE
     Dosage: UNK
  10. DYMISTA [Concomitant]
     Active Substance: AZELASTINE HYDROCHLORIDE\FLUTICASONE PROPIONATE
     Dosage: UNK
  11. PROPRANOLOL HYDROCHLORIDE [Concomitant]
     Active Substance: PROPRANOLOL HYDROCHLORIDE
     Dosage: UNK
  12. PEPCID [Concomitant]
     Active Substance: FAMOTIDINE
     Dosage: UNK
  13. PLAQUENIL [Concomitant]
     Active Substance: HYDROXYCHLOROQUINE SULFATE
     Dosage: UNK
  14. ACETAMINOPHEN [Concomitant]
     Active Substance: ACETAMINOPHEN
     Dosage: UNK
  15. SODIUM CHLORIDE [Concomitant]
     Active Substance: SODIUM CHLORIDE
     Dosage: UNK
     Route: 065
  16. CYCLOBENZAPRINE HYDROCHLORIDE [Concomitant]
     Active Substance: CYCLOBENZAPRINE HYDROCHLORIDE
     Dosage: UNK
  17. LIDOCAINE [Concomitant]
     Active Substance: LIDOCAINE
     Dosage: UNK
  18. VITAMIN D [Concomitant]
     Active Substance: VITAMIN D NOS
     Dosage: UNK
  19. HERBALS\TURMERIC [Concomitant]
     Active Substance: HERBALS\TURMERIC
     Dosage: UNK
  20. OMEPRAZOLE [Concomitant]
     Active Substance: OMEPRAZOLE
     Dosage: UNK
  21. LYRICA [Concomitant]
     Active Substance: PREGABALIN
     Dosage: UNK
  22. HIZENTRA [Concomitant]
     Active Substance: HUMAN IMMUNOGLOBULIN G
     Dosage: UNK
  23. RISPERDAL [Concomitant]
     Active Substance: RISPERIDONE
     Dosage: UNK
  24. AMITRIPTYLINE HYDROCHLORIDE [Concomitant]
     Active Substance: AMITRIPTYLINE HYDROCHLORIDE
     Dosage: UNK
  25. SERTRALINE HYDROCHLORIDE [Concomitant]
     Active Substance: SERTRALINE HYDROCHLORIDE

REACTIONS (41)
  - Paralysis [Unknown]
  - Autoimmune disorder [Unknown]
  - Pneumonia [Unknown]
  - Cerebrovascular accident [Unknown]
  - Infusion related reaction [Unknown]
  - Illness [Unknown]
  - Tic [Unknown]
  - Multiple allergies [Not Recovered/Not Resolved]
  - Menstruation irregular [Unknown]
  - Fall [Unknown]
  - Wrist fracture [Unknown]
  - COVID-19 [Not Recovered/Not Resolved]
  - Nasopharyngitis [Not Recovered/Not Resolved]
  - Hypersomnia [Recovering/Resolving]
  - Seasonal allergy [Unknown]
  - Localised infection [Unknown]
  - Small fibre neuropathy [Unknown]
  - Nasal septum deviation [Unknown]
  - Postural orthostatic tachycardia syndrome [Unknown]
  - Viral infection [Not Recovered/Not Resolved]
  - Skin infection [Unknown]
  - Swelling face [Unknown]
  - Mass [Unknown]
  - Poor venous access [Unknown]
  - Staphylococcal infection [Unknown]
  - Dehydration [Unknown]
  - Respiratory tract infection [Unknown]
  - Seasonal affective disorder [Unknown]
  - Generalised anxiety disorder [Unknown]
  - Influenza [Unknown]
  - Sinusitis [Not Recovered/Not Resolved]
  - Hypoaesthesia [Unknown]
  - Pain [Unknown]
  - Asthma [Unknown]
  - Swelling [Unknown]
  - Abdominal distension [Unknown]
  - Muscle spasms [Unknown]
  - Arthralgia [Unknown]
  - Fatigue [Unknown]
  - Migraine [Unknown]
  - Myalgia [Unknown]

NARRATIVE: CASE EVENT DATE: 20200801
